FAERS Safety Report 14156328 (Version 3)
Quarter: 2018Q2

REPORT INFORMATION
  Report Type: Spontaneous
  Country: US (occurrence: US)
  Receive Date: 20171103
  Receipt Date: 20180523
  Transmission Date: 20180711
  Serious: No
  Sender: FDA-Public Use
  Company Number: US-PFIZER INC-2017473714

PATIENT
  Sex: Female

DRUGS (6)
  1. LIDOCAINE HCL [Suspect]
     Active Substance: LIDOCAINE HYDROCHLORIDE
     Dosage: UNK
  2. FLUCONAZOLE. [Suspect]
     Active Substance: FLUCONAZOLE
     Dosage: UNK
  3. NEOMYCIN AND POLYMYXIN B SULFATES, BACITRACIN [Suspect]
     Active Substance: BACITRACIN\NEOMYCIN\POLYMYXIN B SULFATE
     Dosage: UNK
  4. POVIDONE-IODINE. [Suspect]
     Active Substance: POVIDONE-IODINE
     Dosage: UNK
  5. ASPIRIN. [Suspect]
     Active Substance: ASPIRIN
     Dosage: UNK
  6. LIDODERM [Suspect]
     Active Substance: LIDOCAINE
     Dosage: UNK

REACTIONS (1)
  - Drug hypersensitivity [Unknown]
